FAERS Safety Report 5867347-3 (Version None)
Quarter: 2008Q3

REPORT INFORMATION
  Report Type: 
  Country: None (occurrence: None)
  Receive Date: 20080902
  Receipt Date: 20080822
  Transmission Date: 20090109
  Serious: Yes (Other)
  Sender: FDA-Public Use
  Company Number: PHBS2008US05506

PATIENT
  Age: 24 Year
  Sex: Female

DRUGS (9)
  1. OXYTOCIN [Suspect]
     Dosage: 10 U, UNK
     Route: 030
  2. SODIUM CITRATE [Concomitant]
     Dosage: 30 ML, UNK
     Route: 048
  3. METOCLOPRAMIDE [Concomitant]
     Dosage: 10 MG, UNK
  4. FAMOTIDINE [Concomitant]
     Dosage: 20 MG, UNK
     Route: 042
  5. LABETALOL HCL [Concomitant]
     Route: 042
  6. BUPIVACAINE [Concomitant]
     Dosage: 2.4 MG, UNK
  7. FENTANYL-25 [Concomitant]
     Dosage: 5 UG, UNK
  8. MORPHINE [Concomitant]
     Dosage: 40 UG, UNK
  9. PHENYLEPHRINE [Concomitant]
     Dosage: 100 UG, UNK

REACTIONS (3)
  - CARDIAC OUTPUT INCREASED [None]
  - MEAN ARTERIAL PRESSURE DECREASED [None]
  - VASCULAR RESISTANCE SYSTEMIC DECREASED [None]
